FAERS Safety Report 7026602-4 (Version None)
Quarter: 2010Q3

REPORT INFORMATION
  Report Type: 
  Country: None (occurrence: None)
  Receive Date: 20100930
  Receipt Date: 20100920
  Transmission Date: 20110219
  Serious: Yes (Other)
  Sender: FDA-Public Use
  Company Number: 1000016468

PATIENT
  Age: 60 Year
  Sex: Female
  Weight: 55 kg

DRUGS (5)
  1. ESCITALOPRAM [Suspect]
     Indication: DEPRESSION
     Dosage: 20 MG (20 MG,1 IN 1 D),ORAL
     Route: 048
     Dates: start: 20100401
  2. NOIAFREN (CLOBAZAM) (TABLETS) (CLOBAZAM) [Concomitant]
  3. EUTIROX (LEVOTHYROXINE) (TABLETS) (LEVOTHYROXINE) [Concomitant]
  4. ATORVASTATIN CALCIUM (ATORVASTATIN CALCIUM) (TABLETS) (ATORVASTATIN CA [Concomitant]
  5. OMEPRAZOLE (OMEPRAZOLE) (TABLETS) (OMEPRAZOLE) [Concomitant]

REACTIONS (1)
  - URINARY INCONTINENCE [None]
